FAERS Safety Report 14343777 (Version 1)
Quarter: 2018Q1

REPORT INFORMATION
  Report Type: Spontaneous
  Country: US (occurrence: US)
  Receive Date: 20180102
  Receipt Date: 20180102
  Transmission Date: 20180509
  Serious: No
  Sender: FDA-Public Use
  Company Number: US-TAIHO ONCOLOGY INC-EU-2017-01551

PATIENT
  Sex: Female
  Weight: 63.29 kg

DRUGS (1)
  1. LONSURF [Suspect]
     Active Substance: TIPIRACIL HYDROCHLORIDE\TRIFLURIDINE
     Indication: COLON CANCER METASTATIC
     Dosage: DOSAGE AND FREQUENCY REGIMEN UNKNOWN
     Route: 048

REACTIONS (2)
  - Cancer pain [Unknown]
  - Disease progression [Unknown]

NARRATIVE: CASE EVENT DATE: 2017
